FAERS Safety Report 4300925-1 (Version None)
Quarter: 2004Q1

REPORT INFORMATION
  Report Type: 
  Country: None (occurrence: None)
  Receive Date: 20040218
  Receipt Date: 20031208
  Transmission Date: 20041129
  Serious: No
  Sender: FDA-Public Use
  Company Number: 2003-04-0584

PATIENT
  Age: 44 Year
  Sex: Male

DRUGS (2)
  1. PEG-INTRON [Suspect]
     Indication: HEPATITIS C
     Dosage: SUBCUTANEOUS
     Route: 058
     Dates: start: 20000101
  2. RIBAVIRIN [Suspect]
     Indication: HEPATITIS C
     Dates: start: 20000101

REACTIONS (6)
  - BACK DISORDER [None]
  - LETHARGY [None]
  - OSTEOARTHRITIS [None]
  - PYREXIA [None]
  - TOOTH DISORDER [None]
  - WEIGHT DECREASED [None]
